FAERS Safety Report 17681460 (Version 1)
Quarter: 2020Q2

REPORT INFORMATION
  Report Type: Spontaneous
  Country: US (occurrence: US)
  Receive Date: 20200417
  Receipt Date: 20200417
  Transmission Date: 20200714
  Serious: Yes (Hospitalization)
  Sender: FDA-Public Use
  Company Number: US-FRESENIUS MEDICAL CARE RENAL THERAPIES GROUP-FMC-2004-000404

PATIENT
  Age: 69 Year
  Sex: Male
  Weight: 97.5 kg

DRUGS (4)
  1. DELFLEX WITH DEXTROSE 4.25% LOW MAGNESIUM LOW CALCIUM [Suspect]
     Active Substance: CALCIUM CHLORIDE\DEXTROSE\MAGNESIUM CHLORIDE\SODIUM CHLORIDE\SODIUM LACTATE
     Indication: END STAGE RENAL DISEASE
     Dosage: FILL VOLUME = 2300 ML, 4 EXCHANGES, LAST FILL = 1500 ML, DWELL TIME = 1.75 HOURS, DAYTIME EXCHANGE =
     Route: 033
     Dates: start: 20190408
  2. DELFLEX WITH DEXTROSE 2.5% LOW MAGNESIUM LOW CALCIUM [Suspect]
     Active Substance: CALCIUM CHLORIDE\DEXTROSE\MAGNESIUM CHLORIDE\SODIUM CHLORIDE\SODIUM LACTATE
     Indication: END STAGE RENAL DISEASE
     Dosage: FILL VOLUME = 2300 ML, 4 EXCHANGES, LAST FILL = 1500 ML, DWELL TIME = 1.75 HOURS, DAYTIME EXCHANGE =
     Route: 033
     Dates: start: 20190408
  3. DELFLEX WITH DEXTROSE 1.5% LOW MAGNESIUM LOW CALCIUM [Suspect]
     Active Substance: CALCIUM CHLORIDE\DEXTROSE\MAGNESIUM CHLORIDE\SODIUM CHLORIDE\SODIUM LACTATE
     Indication: END STAGE RENAL DISEASE
     Dosage: FILL VOLUME = 2300 ML, 4 EXCHANGES, LAST FILL = 1500 ML, DWELL TIME = 1.75 HOURS, DAYTIME EXCHANGE =
     Route: 033
     Dates: start: 20190408
  4. PREDNISONE. [Concomitant]
     Active Substance: PREDNISONE

REACTIONS (1)
  - Peritonitis bacterial [Unknown]
